FAERS Safety Report 15291038 (Version 1)
Quarter: 2018Q3

REPORT INFORMATION
  Report Type: Spontaneous
  Country: PL (occurrence: PL)
  Receive Date: 20180817
  Receipt Date: 20180817
  Transmission Date: 20181010
  Serious: Yes (Other)
  Sender: FDA-Public Use
  Company Number: PHHY2018PL068845

PATIENT
  Age: 40 Year
  Sex: Female

DRUGS (19)
  1. ARIPIPRAZOLE. [Suspect]
     Active Substance: ARIPIPRAZOLE
     Indication: SCHIZOPHRENIA
     Dosage: 22.5 MG, QD
     Route: 065
  2. GUTRON [Concomitant]
     Active Substance: MIDODRINE
     Indication: PRODUCT USED FOR UNKNOWN INDICATION
     Dosage: 5 MG, QD
     Route: 065
     Dates: start: 201210
  3. SEDAM [Suspect]
     Active Substance: BROMAZEPAM
     Indication: INSOMNIA
     Dosage: 1.5 MG, QN (AT NIGHT TEMPORARILY)
     Route: 065
     Dates: start: 2017
  4. VALPROIC ACID. [Suspect]
     Active Substance: VALPROIC ACID
     Dosage: DOSAGE FORM: UNSPECIFIED, 2 X 500 MG
     Route: 065
  5. RISPOLEPT CONSTA [Suspect]
     Active Substance: RISPERIDONE
     Indication: PARANOIA
     Dosage: 50 MG, QW2
     Route: 030
     Dates: start: 201706
  6. VALPROIC ACID. [Suspect]
     Active Substance: VALPROIC ACID
     Dosage: 1000 MG, UNK
     Route: 065
  7. RISPERIDONE. [Suspect]
     Active Substance: RISPERIDONE
     Indication: SCHIZOPHRENIA
     Dosage: 6 MG, QD
     Route: 048
     Dates: end: 201704
  8. RISPERIDONE. [Suspect]
     Active Substance: RISPERIDONE
     Dosage: 3 MG, QD
     Route: 048
     Dates: end: 201706
  9. LACTULOSUM [Concomitant]
     Indication: PRODUCT USED FOR UNKNOWN INDICATION
     Dosage: 2 DF, QD (2 GIFERS IN THE MORNING)
     Route: 065
     Dates: start: 1020
  10. QUETIAPINE. [Suspect]
     Active Substance: QUETIAPINE
     Indication: SCHIZOPHRENIA
     Dosage: 100 MG, UNK
     Route: 065
  11. QUETIAPINE. [Suspect]
     Active Substance: QUETIAPINE
     Dosage: UNK
     Route: 065
  12. SEDAM [Suspect]
     Active Substance: BROMAZEPAM
     Dosage: 6 MG, QD
     Route: 065
     Dates: end: 201704
  13. SEDAM [Suspect]
     Active Substance: BROMAZEPAM
     Dosage: 3 MG, QD
     Route: 065
     Dates: start: 201704
  14. SEDAM [Suspect]
     Active Substance: BROMAZEPAM
     Dosage: 3 MG, QD
     Route: 065
     Dates: start: 2017
  15. AKINETON [Concomitant]
     Active Substance: BIPERIDEN HYDROCHLORIDE
     Indication: PRODUCT USED FOR UNKNOWN INDICATION
     Dosage: 2 DF, UNK
     Route: 065
  16. RISPERIDONE. [Suspect]
     Active Substance: RISPERIDONE
     Dosage: 3 MG, QD
     Route: 048
     Dates: start: 201704
  17. DIAZEPAM. [Suspect]
     Active Substance: DIAZEPAM
     Indication: SCHIZOPHRENIA
     Dosage: 5 MG, UNK (RELANIUM)
     Route: 065
     Dates: start: 201210
  18. QUETIAPINE XR [Suspect]
     Active Substance: QUETIAPINE
     Indication: SCHIZOPHRENIA
     Dosage: 300 MG, QD
     Route: 065
     Dates: start: 201704, end: 2017
  19. QUETIAPINE XR [Suspect]
     Active Substance: QUETIAPINE
     Dosage: 400 MG, QD (?0?1; START DATE: BETWEEN OCT AND DEC?2017)
     Route: 065
     Dates: start: 2017

REACTIONS (7)
  - Suicidal ideation [Recovered/Resolved]
  - Disturbance in attention [Recovered/Resolved]
  - Inappropriate schedule of drug administration [Unknown]
  - Persecutory delusion [Recovered/Resolved]
  - Memory impairment [Recovered/Resolved]
  - Anxiety [Recovered/Resolved]
  - Treatment noncompliance [Unknown]

NARRATIVE: CASE EVENT DATE: 2017
